FAERS Safety Report 15434826 (Version 1)
Quarter: 2018Q3

REPORT INFORMATION
  Report Type: Spontaneous
  Country: US (occurrence: US)
  Receive Date: 20180922
  Receipt Date: 20180922
  Transmission Date: 20181010
  Serious: Yes (Disabling)
  Sender: FDA-Public Use
  Company Number: None

PATIENT
  Age: 49 Year
  Sex: Female
  Weight: 67.5 kg

DRUGS (1)
  1. BUPROPION HYDROCHLORIDE XL [Suspect]
     Active Substance: BUPROPION HYDROCHLORIDE
     Indication: DEPRESSION
     Dosage: ?          QUANTITY:1 TABLET(S);?
     Route: 048
     Dates: start: 20180828, end: 20180921

REACTIONS (8)
  - Arthralgia [None]
  - Pain of skin [None]
  - Musculoskeletal pain [None]
  - Pain in extremity [None]
  - Myalgia [None]
  - Back pain [None]
  - Gait disturbance [None]
  - Neck pain [None]

NARRATIVE: CASE EVENT DATE: 20180910
